FAERS Safety Report 16270190 (Version 1)
Quarter: 2019Q2

REPORT INFORMATION
  Report Type: Spontaneous
  Country: US (occurrence: US)
  Receive Date: 20190329
  Receipt Date: 20190329
  Transmission Date: 20190711
  Serious: No
  Sender: FDA-Public Use
  Company Number: None

PATIENT
  Age: 50 Year
  Sex: Female

DRUGS (1)
  1. CEFTRIAXONE SODIUM 2 GM APOTEX [Suspect]
     Active Substance: CEFTRIAXONE SODIUM
     Indication: SEPSIS
     Dosage: ?          OTHER FREQUENCY:Q24H;?
     Route: 042
     Dates: start: 20190321, end: 20190326

REACTIONS (1)
  - Rash [None]

NARRATIVE: CASE EVENT DATE: 20190323
